FAERS Safety Report 10101306 (Version 1)
Quarter: 2014Q2

REPORT INFORMATION
  Report Type: Spontaneous
  Country: US (occurrence: US)
  Receive Date: 20140424
  Receipt Date: 20140424
  Transmission Date: 20141212
  Serious: No
  Sender: FDA-Public Use
  Company Number: US-PFIZER INC-2014111774

PATIENT
  Age: 58 Year
  Sex: Female
  Weight: 68.03 kg

DRUGS (11)
  1. CHANTIX [Suspect]
     Indication: SMOKING CESSATION THERAPY
     Dosage: 1 MG, 2X/DAY
     Route: 048
     Dates: start: 20140414
  2. ALPRAZOLAM [Concomitant]
     Indication: ANXIETY DISORDER
     Dosage: 0.5 MG, 2X/DAY
  3. AMLODIPINE [Concomitant]
     Indication: HYPERTENSION
     Dosage: 5 MG, 1X/DAY
  4. ATENOLOL [Concomitant]
     Indication: HYPERTENSION
     Dosage: 25 MG, 2X/DAY
  5. ASPIRIN [Concomitant]
     Indication: ANTICOAGULANT THERAPY
     Dosage: UNK, 1X/DAY
  6. BACLOFEN [Concomitant]
     Indication: MUSCLE SPASMS
     Dosage: 20 MG, 3X/DAY
  7. CLOPIDOGREL [Concomitant]
     Indication: ANTICOAGULANT THERAPY
     Dosage: 75 MG, 1X/DAY
  8. CLONAZEPAM [Concomitant]
     Indication: CONVULSION
     Dosage: 1.5 MG (THREE 0.5 MG TOGETHER), 1X/DAY
  9. SIMVASTATIN [Concomitant]
     Indication: BLOOD CHOLESTEROL INCREASED
     Dosage: 20 MG, 1X/DAY
  10. GLIPIZIDE [Concomitant]
     Indication: DIABETES MELLITUS
     Dosage: 5 MG, 1X/DAY
  11. METFORMIN [Concomitant]
     Indication: DIABETES MELLITUS
     Dosage: ONE 500MG AT MORNING AND 1000MG (BY TAKING TWO 500MG) AT NIGHT

REACTIONS (4)
  - Tremor [Not Recovered/Not Resolved]
  - Somnolence [Not Recovered/Not Resolved]
  - Fatigue [Not Recovered/Not Resolved]
  - Hyperhidrosis [Recovered/Resolved]
